FAERS Safety Report 6745179-1 (Version None)
Quarter: 2010Q2

REPORT INFORMATION
  Report Type: 
  Country: None (occurrence: None)
  Receive Date: 20100526
  Receipt Date: 20100201
  Transmission Date: 20101027
  Serious: No
  Sender: FDA-Public Use
  Company Number: 2010050032

PATIENT
  Age: 63 Year
  Sex: Female

DRUGS (2)
  1. ONSOLIS [Suspect]
     Dosage: BU
     Route: 002
  2. HYDROCODONE (HYDROCODONE) [Concomitant]

REACTIONS (1)
  - INTERCEPTED MEDICATION ERROR [None]
